FAERS Safety Report 11161430 (Version 1)
Quarter: 2015Q2

REPORT INFORMATION
  Report Type: Spontaneous
  Country: US (occurrence: US)
  Receive Date: 20150604
  Receipt Date: 20150604
  Transmission Date: 20150821
  Serious: No
  Sender: FDA-Public Use
  Company Number: US-SA-2014SA091791

PATIENT
  Age: 85 Year
  Sex: Male

DRUGS (5)
  1. LANTUS SOLOSTAR [Suspect]
     Active Substance: INSULIN GLARGINE
     Indication: TYPE 2 DIABETES MELLITUS
     Dosage: DOSE:12 UNIT(S)
     Route: 058
  2. RANEXA [Concomitant]
     Active Substance: RANOLAZINE
  3. SOLOSTAR [Concomitant]
     Active Substance: DEVICE
     Indication: TYPE 2 DIABETES MELLITUS
  4. ORAL ANTIDIABETICS [Concomitant]
     Active Substance: UNSPECIFIED INGREDIENT
  5. CORTICOSTEROIDS [Concomitant]
     Active Substance: CORTICOSTEROID NOS

REACTIONS (3)
  - Injection site pain [Unknown]
  - Injection site haemorrhage [Unknown]
  - Blood glucose increased [Unknown]
